FAERS Safety Report 5515909-5 (Version None)
Quarter: 2007Q4

REPORT INFORMATION
  Report Type: 
  Country: None (occurrence: None)
  Receive Date: 20071114
  Receipt Date: 20071112
  Transmission Date: 20080405
  Serious: Yes (Death)
  Sender: FDA-Public Use
  Company Number: DE-BAYER-200710933BVD

PATIENT

DRUGS (4)
  1. SORAFENIB [Suspect]
     Indication: HEPATIC NEOPLASM MALIGNANT
     Route: 048
     Dates: start: 20060307, end: 20060917
  2. PANTOPRAZOLE SODIUM [Concomitant]
     Dates: end: 20060917
  3. METAMIZOL [Concomitant]
     Route: 048
     Dates: start: 20060327, end: 20060917
  4. URSODIOL [Concomitant]
     Route: 048
     Dates: start: 20060101, end: 20060917

REACTIONS (2)
  - DISEASE PROGRESSION [None]
  - HEPATIC NEOPLASM MALIGNANT [None]
